FAERS Safety Report 9168163 (Version 1)
Quarter: 2013Q1

REPORT INFORMATION
  Report Type: Spontaneous
  Country: DE (occurrence: None)
  Receive Date: 20130308
  Receipt Date: 20130308
  Transmission Date: 20140127
  Serious: Yes (Other)
  Sender: FDA-Public Use
  Company Number: AUR-APL-2013-01835

PATIENT
  Age: 38 Year
  Sex: Female
  Weight: 45 kg

DRUGS (2)
  1. GABAPENTIN (GABAPENTIN) [Suspect]
     Indication: EPILEPSY
     Route: 048
     Dates: start: 201110
  2. VIMPAT [Suspect]
     Route: 048
     Dates: start: 201101

REACTIONS (3)
  - Maternal exposure during pregnancy [None]
  - Abortion spontaneous [None]
  - Pregnancy [None]
